FAERS Safety Report 8416701-4 (Version None)
Quarter: 2012Q2

REPORT INFORMATION
  Report Type: 
  Country: None (occurrence: None)
  Receive Date: 20120606
  Receipt Date: 20120603
  Transmission Date: 20120825
  Serious: No
  Sender: FDA-Public Use
  Company Number: US-PFIZER INC-2012133169

PATIENT
  Sex: Male
  Weight: 74.83 kg

DRUGS (4)
  1. CHANTIX [Suspect]
     Indication: SMOKING CESSATION THERAPY
     Dosage: 0.5 MG, 1X/DAY
     Route: 048
     Dates: start: 20120526
  2. CHANTIX [Suspect]
     Dosage: 0.5 MG, 2X/DAY
     Route: 048
  3. DOXYCYCLINE [Concomitant]
     Indication: ARTHROPOD BITE
     Dosage: UNK
  4. TAMSULOSIN [Concomitant]
     Indication: PROSTATOMEGALY
     Dosage: UNK

REACTIONS (4)
  - INSOMNIA [None]
  - DRUG INEFFECTIVE [None]
  - FRUSTRATION [None]
  - ANGER [None]
